FAERS Safety Report 23908178 (Version 1)
Quarter: 2024Q2

REPORT INFORMATION
  Report Type: Spontaneous
  Country: DK (occurrence: DK)
  Receive Date: 20240528
  Receipt Date: 20240528
  Transmission Date: 20240715
  Serious: Yes (Other)
  Sender: FDA-Public Use
  Company Number: None

PATIENT
  Age: 56 Year
  Sex: Female
  Weight: 83 kg

DRUGS (3)
  1. ZOLOFT [Suspect]
     Active Substance: SERTRALINE HYDROCHLORIDE
     Indication: Depression
     Dosage: 50 MILLIGRAM, QD (TAKEN TWO NIGHTS IN A ROW, BEFORE BED AS PRESCRIBED)
     Route: 048
     Dates: start: 20240424, end: 20240425
  2. ZOLOFT [Suspect]
     Active Substance: SERTRALINE HYDROCHLORIDE
     Indication: Anxiety
  3. AROMASIN [Concomitant]
     Active Substance: EXEMESTANE
     Indication: Neoplasm malignant
     Dosage: 25 MILLIGRAM, QD
     Route: 065
     Dates: start: 20200703

REACTIONS (13)
  - Poisoning [Recovering/Resolving]
  - Dyspnoea [Recovering/Resolving]
  - Suffocation feeling [Recovering/Resolving]
  - Foaming at mouth [Recovered/Resolved]
  - Pain of skin [Recovering/Resolving]
  - Pharyngeal swelling [Recovering/Resolving]
  - Swelling [Recovering/Resolving]
  - Migraine [Recovering/Resolving]
  - Pyrexia [Recovered/Resolved]
  - Diarrhoea [Recovering/Resolving]
  - Abdominal pain [Recovered/Resolved]
  - Palpitations [Recovered/Resolved]
  - Vomiting [Recovered/Resolved]

NARRATIVE: CASE EVENT DATE: 20240424
